FAERS Safety Report 26052737 (Version 3)
Quarter: 2025Q4

REPORT INFORMATION
  Report Type: Spontaneous
  Country: EU (occurrence: EU)
  Receive Date: 20251117
  Receipt Date: 20251203
  Transmission Date: 20260117
  Serious: Yes (Hospitalization, Other)
  Sender: SANDOZ
  Company Number: EU-ROCHE-10000419860

PATIENT
  Age: 41 Year
  Sex: Male

DRUGS (42)
  1. ADRIACIN [Suspect]
     Active Substance: DOXORUBICIN HYDROCHLORIDE
     Indication: Diffuse large B-cell lymphoma
     Dosage: PART OF FIRST-LINE CHEMOTHERAPY IN DA EPOCH SCHEME
     Route: 065
     Dates: start: 2021
  2. ANAKINRA [Suspect]
     Active Substance: ANAKINRA
     Indication: Immune effector cell-associated neurotoxicity syndrome
     Dosage: UNK
     Route: 065
  3. AXICABTAGENE CILOLEUCEL [Suspect]
     Active Substance: AXICABTAGENE CILOLEUCEL
     Indication: Diffuse large B-cell lymphoma
     Dosage: 68 ML
     Route: 065
  4. CYCLOPHOSPHAMIDE [Suspect]
     Active Substance: CYCLOPHOSPHAMIDE
     Indication: Diffuse large B-cell lymphoma
     Dosage: 500 MG/M2 (ON DAYS 1-3 AS A CONDITIONING THERAPY)
     Route: 065
  5. CYCLOPHOSPHAMIDE [Suspect]
     Active Substance: CYCLOPHOSPHAMIDE
     Indication: Tuberculosis
     Dosage: PART OF FIRST-LINE CHEMOTHERAPY IN DA EPOCH SCHEME
     Route: 065
     Dates: start: 2021
  6. CYTARABINE [Suspect]
     Active Substance: CYTARABINE
     Dosage: UNK
     Route: 065
  7. CYTARABINE [Suspect]
     Active Substance: CYTARABINE
     Indication: Diffuse large B-cell lymphoma
     Dosage: UNK ( PART OF SECOND-LINE CHEMOTHERAPY IN R DHAOX REGIMEN)
     Route: 065
  8. DECADRON (DEXAMETHASONE SODIUM PHOSPHATE) [Suspect]
     Active Substance: DEXAMETHASONE SODIUM PHOSPHATE
     Dosage: UNK
     Route: 065
  9. DECADRON (DEXAMETHASONE SODIUM PHOSPHATE) [Suspect]
     Active Substance: DEXAMETHASONE SODIUM PHOSPHATE
     Indication: Diffuse large B-cell lymphoma
     Dosage: UNK (PART OF SECOND-LINE CHEMOTHERAPY IN R DHAOX REGIMEN)
     Route: 065
  10. ETOPOSIDE [Suspect]
     Active Substance: ETOPOSIDE
     Indication: Diffuse large B-cell lymphoma
     Dosage: PART OF FIRST-LINE CHEMOTHERAPY IN DA EPOCH SCHEME
     Route: 065
     Dates: start: 2021
  11. ETHAMBUTOL [Suspect]
     Active Substance: ETHAMBUTOL HYDROCHLORIDE
     Indication: Diffuse large B-cell lymphoma
     Dosage: 1200 MG
     Route: 065
  12. ETHAMBUTOL [Suspect]
     Active Substance: ETHAMBUTOL HYDROCHLORIDE
     Indication: Tuberculosis
     Dosage: 1200 MG
     Route: 065
  13. FLUDARABINE [Suspect]
     Active Substance: FLUDARABINE PHOSPHATE
     Indication: Bone marrow conditioning regimen
     Dosage: 30 MG/M2 ( ON DAYS 1?3 CONDITIONING CHEMOTHERAPY)
     Route: 065
  14. ISONIAZID [Suspect]
     Active Substance: ISONIAZID
     Indication: Tuberculosis
     Dosage: 300 MG
     Route: 065
  15. ISONIAZID [Suspect]
     Active Substance: ISONIAZID
     Dosage: UNK
     Route: 065
  16. LEVOFLOXACIN [Suspect]
     Active Substance: LEVOFLOXACIN
     Indication: Tuberculosis
     Dosage: UNK
     Route: 065
  17. LEVOFLOXACIN [Suspect]
     Active Substance: LEVOFLOXACIN
     Indication: Off label use
  18. LEVOFLOXACIN [Suspect]
     Active Substance: LEVOFLOXACIN
     Indication: Off label use
  19. LEVOFLOXACIN [Suspect]
     Active Substance: LEVOFLOXACIN
     Indication: Tuberculosis
  20. OXALIPLATIN [Suspect]
     Active Substance: OXALIPLATIN
     Dosage: UNK
     Route: 065
  21. OXALIPLATIN [Suspect]
     Active Substance: OXALIPLATIN
     Indication: Diffuse large B-cell lymphoma
     Dosage: UNK, (PART OF SECOND-LINE CHEMOTHERAPY IN R DHAOX REGIMEN)
     Route: 065
  22. PREDNISONE [Suspect]
     Active Substance: PREDNISONE
     Indication: Diffuse large B-cell lymphoma
     Dosage: PART OF FIRST-LINE CHEMOTHERAPY IN DA EPOCH SCHEME
     Route: 065
     Dates: start: 2021
  23. PYRAZINAMIDE [Suspect]
     Active Substance: PYRAZINAMIDE
     Indication: Diffuse large B-cell lymphoma
     Dosage: 1500 MG
     Route: 065
  24. PYRAZINAMIDE [Suspect]
     Active Substance: PYRAZINAMIDE
     Indication: Tuberculosis
     Dosage: 1500 MG
     Route: 065
  25. RITUXIMAB [Suspect]
     Active Substance: RITUXIMAB
     Indication: Diffuse large B-cell lymphoma
     Dosage: PART OF FIRST-LINE CHEMOTHERAPY IN DA EPOCH SCHEME
     Route: 065
     Dates: start: 2021
  26. RITUXIMAB [Suspect]
     Active Substance: RITUXIMAB
     Dosage: UNK
     Route: 065
  27. RITUXIMAB [Suspect]
     Active Substance: RITUXIMAB
     Dosage: SECOND-LINE CHEMOTHERAPY IN R-DHAOX REGIMEN
     Route: 065
  28. TOCILIZUMAB [Suspect]
     Active Substance: TOCILIZUMAB
     Indication: Cytokine release syndrome
     Dosage: UNK (TWO DOSES OF TOCILIZUMAB)
     Route: 065
  29. VINCRISTINE SULFATE [Suspect]
     Active Substance: VINCRISTINE SULFATE
     Indication: Diffuse large B-cell lymphoma
     Dosage: PART OF FIRST-LINE CHEMOTHERAPY IN DA EPOCH SCHEME
     Route: 065
     Dates: start: 2021
  30. AMIKACIN [Concomitant]
     Active Substance: AMIKACIN
     Indication: Evidence based treatment
     Route: 065
  31. AXICABTAGENE CILOLEUCEL [Concomitant]
     Active Substance: AXICABTAGENE CILOLEUCEL
     Indication: Diffuse large B-cell lymphoma
     Dosage: VOLUME 68 ML, CELLS 0.4?2 ? 10^8 CONDITIONING CHEMOTHERAPY (INFUSION (PFT)
     Route: 065
  32. PFIZER-BIONTECH COVID-19 VACCINE [Concomitant]
     Active Substance: TOZINAMERAN
     Indication: COVID-19 immunisation
     Dosage: UNK
     Route: 065
  33. ETHAMBUTOL [Concomitant]
     Active Substance: ETHAMBUTOL HYDROCHLORIDE
     Indication: Tuberculosis
     Route: 065
  34. ETHAMBUTOL [Concomitant]
     Active Substance: ETHAMBUTOL HYDROCHLORIDE
     Indication: Tuberculosis
     Route: 065
  35. MEROPENEM [Concomitant]
     Active Substance: MEROPENEM
     Indication: Evidence based treatment
     Dosage: UNK
     Route: 065
  36. MICAFUNGIN [Concomitant]
     Active Substance: MICAFUNGIN SODIUM
     Indication: Antifungal prophylaxis
     Dosage: UNK
     Route: 065
  37. PYRAZINAMIDE [Concomitant]
     Active Substance: PYRAZINAMIDE
     Indication: Tuberculosis
     Route: 065
  38. PYRAZINAMIDE [Concomitant]
     Active Substance: PYRAZINAMIDE
     Indication: Tuberculosis
     Route: 065
  39. RIFAMPIN [Concomitant]
     Active Substance: RIFAMPIN
     Indication: Tuberculosis
     Dosage: 600 MG
     Route: 065
  40. SOTROVIMAB [Concomitant]
     Active Substance: SOTROVIMAB
     Indication: COVID-19
     Dosage: SINGLE DOSE
     Route: 065
     Dates: start: 2021
  41. SULFAMETHOXAZOLE\TRIMETHOPRIM [Concomitant]
     Active Substance: SULFAMETHOXAZOLE\TRIMETHOPRIM
     Indication: Prophylaxis
     Dosage: UNK
     Route: 065
  42. VALACYCLOVIR [Concomitant]
     Active Substance: VALACYCLOVIR HYDROCHLORIDE
     Indication: Prophylaxis
     Dosage: UNK
     Route: 065

REACTIONS (13)
  - COVID-19 [Recovered/Resolved]
  - Tuberculosis [Recovered/Resolved]
  - Respiratory distress [Unknown]
  - Immune effector cell-associated neurotoxicity syndrome [Recovered/Resolved]
  - Epilepsy [Recovered/Resolved]
  - Encephalitis [Recovered/Resolved]
  - Aphasia [Recovered/Resolved]
  - Cytokine release syndrome [Recovered/Resolved]
  - Aspergillus infection [Recovered/Resolved]
  - Bronchopulmonary aspergillosis [Recovered/Resolved]
  - Drug ineffective [Unknown]
  - Off label use [Recovered/Resolved]
  - Tuberculosis [Recovered/Resolved]
